FAERS Safety Report 19470325 (Version 1)
Quarter: 2021Q2

REPORT INFORMATION
  Report Type: Spontaneous
  Country: US (occurrence: US)
  Receive Date: 20210629
  Receipt Date: 20210629
  Transmission Date: 20210717
  Serious: No
  Sender: FDA-Public Use
  Company Number: US-TARO-2020TAR01008

PATIENT

DRUGS (4)
  1. NORTRIPTYLINE HCL CAPSULES 25 MG [Suspect]
     Active Substance: NORTRIPTYLINE HYDROCHLORIDE
     Dosage: 50 MILLIGRAM, DAILY
     Route: 048
     Dates: start: 20200505, end: 20200514
  2. ENGALITY [Concomitant]
     Indication: PRODUCT USED FOR UNKNOWN INDICATION
     Dosage: UNK
     Route: 065
  3. NORTRIPTYLINE HCL CAPSULES 25 MG [Suspect]
     Active Substance: NORTRIPTYLINE HYDROCHLORIDE
     Dosage: 25 MILLIGRAM, DAILY
     Route: 048
     Dates: start: 20200515
  4. NORTRIPTYLINE HCL CAPSULES 25 MG [Suspect]
     Active Substance: NORTRIPTYLINE HYDROCHLORIDE
     Indication: MIGRAINE
     Dosage: 25 MILLIGRAM, OD
     Route: 048
     Dates: start: 20200408, end: 20200504

REACTIONS (4)
  - Anxiety [Not Recovered/Not Resolved]
  - Hot flush [Not Recovered/Not Resolved]
  - Tachyphrenia [Not Recovered/Not Resolved]
  - Crying [Not Recovered/Not Resolved]

NARRATIVE: CASE EVENT DATE: 20200516
